FAERS Safety Report 4295667-5 (Version None)
Quarter: 2004Q1

REPORT INFORMATION
  Report Type: 
  Country: None (occurrence: None)
  Receive Date: 20040216
  Receipt Date: 20030807
  Transmission Date: 20041129
  Serious: No
  Sender: FDA-Public Use
  Company Number: US-GLAXOSMITHKLINE-A0420122A

PATIENT
  Age: 29 Year
  Sex: Female
  Weight: 71.8 kg

DRUGS (1)
  1. PAXIL [Suspect]

REACTIONS (2)
  - BLOOD PRESSURE DECREASED [None]
  - DRUG INTOLERANCE [None]
